FAERS Safety Report 7759260-1 (Version None)
Quarter: 2011Q3

REPORT INFORMATION
  Report Type: 
  Country: None (occurrence: None)
  Receive Date: 20110915
  Receipt Date: 20110831
  Transmission Date: 20111222
  Serious: Yes (Other)
  Sender: FDA-Public Use
  Company Number: 2011SP041315

PATIENT
  Sex: Female

DRUGS (3)
  1. VICTRELIS [Suspect]
     Indication: HEPATITIS C
     Dates: start: 20110826
  2. PEG-INTRON [Suspect]
     Indication: HEPATITIS C
     Dates: start: 20110729
  3. RIBAVIRIN [Suspect]
     Indication: HEPATITIS C
     Dates: start: 20110729

REACTIONS (4)
  - MENTAL DISORDER [None]
  - BIPOLAR I DISORDER [None]
  - BLOOD COUNT ABNORMAL [None]
  - MANIA [None]
